FAERS Safety Report 12456305 (Version 4)
Quarter: 2016Q3

REPORT INFORMATION
  Report Type: Report from Study
  Country: BR (occurrence: BR)
  Receive Date: 20160610
  Receipt Date: 20160708
  Transmission Date: 20161109
  Serious: Yes (Life-Threatening, Hospitalization)
  Sender: FDA-Public Use
  Company Number: BR-ABBVIE-16P-020-1644206-00

PATIENT
  Age: 70 Year
  Sex: Male
  Weight: 97 kg

DRUGS (13)
  1. SALINE [Concomitant]
     Active Substance: SODIUM CHLORIDE
     Indication: PRODUCT USED FOR UNKNOWN INDICATION
     Dosage: HE ALSO RECEIVED 1000 M AND 2000MLL (50 ML)
     Route: 042
     Dates: start: 20160531, end: 20160531
  2. CAPTOPRIL. [Concomitant]
     Active Substance: CAPTOPRIL
     Indication: HYPERTENSION
     Route: 048
     Dates: start: 20160531, end: 20160531
  3. GA101 [Suspect]
     Active Substance: OBINUTUZUMAB
     Indication: CHRONIC LYMPHOCYTIC LEUKAEMIA
     Dosage: MOST RECENT DOSE PRIOR TO SAE WAS ON 31 MAY 2016
     Route: 042
     Dates: start: 20160531
  4. DIPHENHYDRAMINE. [Concomitant]
     Active Substance: DIPHENHYDRAMINE
     Indication: PRODUCT USED FOR UNKNOWN INDICATION
     Route: 042
     Dates: start: 20160531
  5. METAMIZOLE [Concomitant]
     Active Substance: METAMIZOLE
     Route: 048
     Dates: start: 20160531, end: 20160531
  6. VENETOCLAX [Suspect]
     Active Substance: VENETOCLAX
     Indication: CHRONIC LYMPHOCYTIC LEUKAEMIA
     Route: 048
  7. RANITIDINE. [Concomitant]
     Active Substance: RANITIDINE
     Indication: PRODUCT USED FOR UNKNOWN INDICATION
     Route: 042
     Dates: start: 20160531
  8. CAPTOPRIL. [Concomitant]
     Active Substance: CAPTOPRIL
     Route: 048
     Dates: start: 20160531, end: 20160531
  9. CHLORAMBUCIL [Suspect]
     Active Substance: CHLORAMBUCIL
     Indication: CHRONIC LYMPHOCYTIC LEUKAEMIA
     Dosage: MOST RECENT DOSE PRIOR TO SAE WAS ON 31 MAY 2016
     Route: 048
     Dates: start: 20160531
  10. LASIX [Concomitant]
     Active Substance: FUROSEMIDE
     Indication: INFUSION RELATED REACTION
     Route: 042
     Dates: start: 20160531, end: 20160531
  11. DEXAMETHASONE. [Concomitant]
     Active Substance: DEXAMETHASONE
     Indication: PRODUCT USED FOR UNKNOWN INDICATION
     Route: 042
     Dates: start: 20160531
  12. PARACETAMOL [Concomitant]
     Active Substance: ACETAMINOPHEN
     Indication: PRODUCT USED FOR UNKNOWN INDICATION
     Route: 048
     Dates: start: 20160531, end: 20160531
  13. METAMIZOLE [Concomitant]
     Active Substance: METAMIZOLE
     Indication: INFUSION RELATED REACTION
     Route: 048
     Dates: start: 20160531, end: 20160531

REACTIONS (1)
  - Tumour lysis syndrome [Recovered/Resolved]

NARRATIVE: CASE EVENT DATE: 20160601
